FAERS Safety Report 11782709 (Version 3)
Quarter: 2019Q3

REPORT INFORMATION
  Report Type: Spontaneous
  Country: DE (occurrence: DE)
  Receive Date: 20151127
  Receipt Date: 20190702
  Transmission Date: 20191004
  Serious: Yes (Congenital Anomaly)
  Sender: FDA-Public Use
  Company Number: GXKR2015DE005172

PATIENT
  Sex: Male
  Weight: 3.14 kg

DRUGS (9)
  1. FOLSAEURE [Concomitant]
     Active Substance: FOLIC ACID
     Indication: PROPHYLAXIS OF NEURAL TUBE DEFECT
     Dosage: UNK
     Route: 064
  2. PROMETHAZINE [Suspect]
     Active Substance: PROMETHAZINE HYDROCHLORIDE
     Indication: RESTLESSNESS
     Dosage: 200 MG, QD
     Route: 064
     Dates: start: 20140601, end: 20140718
  3. SERTRALINE [Suspect]
     Active Substance: SERTRALINE HYDROCHLORIDE
     Indication: DEPRESSION
     Dosage: 800 MG, QD
     Route: 064
     Dates: start: 20140703, end: 20140703
  4. SERTRALINE [Suspect]
     Active Substance: SERTRALINE HYDROCHLORIDE
     Dosage: 150 MG, ONCE DAILY (QD)
     Route: 064
     Dates: start: 201407, end: 20140718
  5. DIAZEPAM. [Concomitant]
     Active Substance: DIAZEPAM
     Dosage: 5 MG, ONCE DAILY (ON DEMAND)
     Route: 064
  6. DIAZEPAM. [Concomitant]
     Active Substance: DIAZEPAM
     Indication: RESTLESSNESS
     Dosage: 5 [MG/D ]/ ON DEMAND (EXPOSURE UNKNOWN)
     Route: 064
  7. SERTRALINE [Suspect]
     Active Substance: SERTRALINE HYDROCHLORIDE
     Indication: SUICIDE ATTEMPT
     Dosage: 150 MG, QD
     Route: 064
     Dates: start: 20140601, end: 20140718
  8. SERTRALINE [Suspect]
     Active Substance: SERTRALINE HYDROCHLORIDE
     Dosage: 800 MG
     Route: 064
     Dates: start: 20140703, end: 20140703
  9. SERTRALINE [Suspect]
     Active Substance: SERTRALINE HYDROCHLORIDE
     Dosage: 150 MG, ONCE DAILY (QD)
     Route: 064
     Dates: start: 20140615, end: 201407

REACTIONS (3)
  - Maternal exposure during pregnancy [Unknown]
  - Atrial septal defect [Not Recovered/Not Resolved]
  - Aortic valve stenosis [Recovered/Resolved with Sequelae]

NARRATIVE: CASE EVENT DATE: 20140615
